FAERS Safety Report 21482231 (Version 1)
Quarter: 2022Q4

REPORT INFORMATION
  Report Type: Spontaneous
  Country: US (occurrence: US)
  Receive Date: 20221020
  Receipt Date: 20221020
  Transmission Date: 20230112
  Serious: No
  Sender: FDA-Public Use
  Company Number: US-CELLTRION INC.-2022US000874

PATIENT

DRUGS (1)
  1. INFLECTRA [Suspect]
     Active Substance: INFLIXIMAB-DYYB
     Indication: Rheumatoid arthritis
     Dosage: 400 MG, IV Q 8 WKS
     Route: 042

REACTIONS (4)
  - Unevaluable event [Unknown]
  - Product availability issue [Unknown]
  - Therapy interrupted [Unknown]
  - Product dose omission issue [Unknown]
